FAERS Safety Report 10662974 (Version 3)
Quarter: 2017Q1

REPORT INFORMATION
  Report Type: Spontaneous
  Country: FR (occurrence: FR)
  Receive Date: 20141218
  Receipt Date: 20170222
  Transmission Date: 20170428
  Serious: Yes (Congenital Anomaly)
  Sender: FDA-Public Use
  Company Number: FR-ABBVIE-14P-056-1322705-00

PATIENT
  Sex: Female

DRUGS (2)
  1. DEPAKINE CHRONO [Suspect]
     Active Substance: VALPROATE SODIUM
     Indication: MATERNAL EXPOSURE TIMING UNSPECIFIED
     Route: 064
  2. TEGRETOL [Suspect]
     Active Substance: CARBAMAZEPINE
     Indication: MATERNAL EXPOSURE TIMING UNSPECIFIED
     Route: 064

REACTIONS (20)
  - Developmental delay [Not Recovered/Not Resolved]
  - Scoliosis [Unknown]
  - Limb malformation [Unknown]
  - Dysmorphism [Unknown]
  - Abnormal behaviour [Unknown]
  - Intellectual disability [Unknown]
  - Fear [Unknown]
  - Educational problem [Unknown]
  - Psychomotor hyperactivity [Not Recovered/Not Resolved]
  - Visual impairment [Unknown]
  - Anxiety [Unknown]
  - Speech disorder [Unknown]
  - Foetal exposure during pregnancy [Unknown]
  - Intellectual disability [Unknown]
  - Ill-defined disorder [Unknown]
  - Foot deformity [Unknown]
  - Motor dysfunction [Unknown]
  - Memory impairment [Unknown]
  - Intellectual disability [Not Recovered/Not Resolved]
  - Disturbance in attention [Unknown]

NARRATIVE: CASE EVENT DATE: 1997
